FAERS Safety Report 18973725 (Version 1)
Quarter: 2021Q1

REPORT INFORMATION
  Report Type: Spontaneous
  Country: FR (occurrence: FR)
  Receive Date: 20210305
  Receipt Date: 20210305
  Transmission Date: 20210420
  Serious: Yes (Hospitalization)
  Sender: FDA-Public Use
  Company Number: FR-ELI_LILLY_AND_COMPANY-FR202102011246

PATIENT
  Age: 50 Year
  Sex: Female

DRUGS (1)
  1. ALIMTA [Suspect]
     Active Substance: PEMETREXED DISODIUM
     Indication: BRONCHIAL CARCINOMA
     Dosage: 1 DOSAGE FORM, CYCLICAL
     Route: 041
     Dates: start: 20200120, end: 202012

REACTIONS (1)
  - Scleroderma-like reaction [Recovering/Resolving]

NARRATIVE: CASE EVENT DATE: 20201214
